FAERS Safety Report 16734760 (Version 2)
Quarter: 2025Q3

REPORT INFORMATION
  Report Type: Spontaneous
  Country: US (occurrence: US)
  Receive Date: 20190823
  Receipt Date: 20250708
  Transmission Date: 20251020
  Serious: Yes (Hospitalization, Other)
  Sender: AUROBINDO
  Company Number: US-MYLANLABS-2019M1077920

PATIENT
  Age: 1 Decade
  Sex: Female

DRUGS (7)
  1. CLONAZEPAM [Suspect]
     Active Substance: CLONAZEPAM
     Indication: Partial seizures
     Route: 065
  2. LEVETIRACETAM [Suspect]
     Active Substance: LEVETIRACETAM
     Indication: Partial seizures
     Route: 065
  3. TOPIRAMATE [Suspect]
     Active Substance: TOPIRAMATE
     Indication: Partial seizures
     Route: 065
  4. PYRIDOXINE [Suspect]
     Active Substance: PYRIDOXINE
     Indication: Partial seizures
     Route: 065
  5. OXCARBAZEPINE [Suspect]
     Active Substance: OXCARBAZEPINE
     Indication: Partial seizures
     Route: 065
  6. PHENOBARBITAL [Interacting]
     Active Substance: PHENOBARBITAL
     Indication: Partial seizures
     Dosage: SLOWLY DECREASED EVERY 2 TO 3 WEEKS OVER AN 8-WEEK PERIOD IN DECREMENTS OF 0.8 TO 3.2 MG/KG/D
     Route: 065
  7. FOSPHENYTOIN [Suspect]
     Active Substance: FOSPHENYTOIN
     Indication: Partial seizures
     Route: 065

REACTIONS (1)
  - Treatment failure [Unknown]
